FAERS Safety Report 20940675 (Version 3)
Quarter: 2022Q4

REPORT INFORMATION
  Report Type: Spontaneous
  Country: US (occurrence: US)
  Receive Date: 20220609
  Receipt Date: 20221226
  Transmission Date: 20230112
  Serious: Yes (Other)
  Sender: FDA-Public Use
  Company Number: US-INTERCEPT-PM2022000837

PATIENT
  Age: 82 Year
  Sex: Female

DRUGS (13)
  1. OCALIVA [Suspect]
     Active Substance: OBETICHOLIC ACID
     Indication: Primary biliary cholangitis
     Dosage: 5 MILLIGRAM, QD
     Route: 048
     Dates: start: 20211208
  2. URSODIOL [Concomitant]
     Active Substance: URSODIOL
  3. AUGMENTIN [Concomitant]
     Active Substance: AMOXICILLIN\CLAVULANATE POTASSIUM
  4. VITAMIN D NOS [Concomitant]
     Active Substance: VITAMIN D NOS
  5. LISINOPRIL [Concomitant]
     Active Substance: LISINOPRIL
  6. ATENOLOL [Concomitant]
     Active Substance: ATENOLOL
  7. AMLODIPINE BESYLATE [Concomitant]
     Active Substance: AMLODIPINE BESYLATE
  8. NEXIUM I.V. [Concomitant]
     Active Substance: ESOMEPRAZOLE SODIUM
  9. CALCIUM CARBONATE\CHOLECALCIFEROL [Concomitant]
     Active Substance: CALCIUM CARBONATE\CHOLECALCIFEROL
  10. CLONIDINE [Concomitant]
     Active Substance: CLONIDINE
  11. NAPHAZOLINE HYDROCHLORIDE [Concomitant]
     Active Substance: NAPHAZOLINE HYDROCHLORIDE
  12. METAMUCIL [Concomitant]
     Active Substance: PLANTAGO SEED
  13. PANTOPRAZOLE SODIUM [Concomitant]
     Active Substance: PANTOPRAZOLE SODIUM

REACTIONS (8)
  - COVID-19 [Unknown]
  - Skin exfoliation [Unknown]
  - Papule [Not Recovered/Not Resolved]
  - Vertigo [Not Recovered/Not Resolved]
  - Loss of personal independence in daily activities [Unknown]
  - Rash macular [Unknown]
  - Eye pruritus [Unknown]
  - Pruritus [Not Recovered/Not Resolved]

NARRATIVE: CASE EVENT DATE: 20211225
